FAERS Safety Report 24980198 (Version 1)
Quarter: 2025Q1

REPORT INFORMATION
  Report Type: Spontaneous
  Country: PL (occurrence: PL)
  Receive Date: 20250218
  Receipt Date: 20250218
  Transmission Date: 20250409
  Serious: Yes (Other)
  Sender: ACCORD
  Company Number: None

PATIENT
  Age: 58 Year
  Sex: Male
  Weight: 63 kg

DRUGS (2)
  1. CISPLATIN [Suspect]
     Active Substance: CISPLATIN
     Indication: Product used for unknown indication
     Dates: start: 20240122, end: 20240125
  2. FLUOROURACIL [Suspect]
     Active Substance: FLUOROURACIL
     Indication: Product used for unknown indication
     Dates: start: 20240122, end: 20240125

REACTIONS (2)
  - Neutropenia [Unknown]
  - Anaemia [Unknown]

NARRATIVE: CASE EVENT DATE: 20240219
